FAERS Safety Report 5132995-5 (Version None)
Quarter: 2006Q4

REPORT INFORMATION
  Report Type: 
  Country: None (occurrence: None)
  Receive Date: 20061023
  Receipt Date: 20061010
  Transmission Date: 20070319
  Serious: Yes (Other)
  Sender: FDA-Public Use
  Company Number: DE-PURDUE-DEU_2006_0002539

PATIENT
  Age: 76 Year
  Sex: Female
  Weight: 76 kg

DRUGS (12)
  1. OXY/NALOXONE VS OXY/PLACEBO CR TAB [Suspect]
     Indication: BACK PAIN
     Dosage: 20 MG, DAILY
     Route: 048
     Dates: start: 20061004, end: 20061004
  2. OXY/NALOXONE VS OXY/PLACEBO CR TAB [Suspect]
     Dosage: 40 MG, DAILY
     Route: 048
     Dates: start: 20061005, end: 20061006
  3. OXYGESIC KAPSELN [Concomitant]
     Indication: BACK PAIN
     Dosage: UNK, PRN
     Route: 048
     Dates: start: 20061004
  4. VERAPAMIL [Concomitant]
  5. TRIAMTERENE [Concomitant]
  6. ALLOPURINOL [Concomitant]
  7. ENALAPRIL MALEATE [Concomitant]
  8. AERODUR [Concomitant]
  9. SYMBICORT [Concomitant]
  10. SIMVASTATIN [Concomitant]
  11. OMEPRAZOLE [Concomitant]
  12. TETRAZEPAM [Concomitant]

REACTIONS (2)
  - DRUG WITHDRAWAL SYNDROME [None]
  - ELECTROCARDIOGRAM CHANGE [None]
